FAERS Safety Report 5773211-0 (Version None)
Quarter: 2008Q2

REPORT INFORMATION
  Report Type: 
  Country: None (occurrence: None)
  Receive Date: 20080601
  Receipt Date: 20080222
  Transmission Date: 20081010
  Serious: No
  Sender: FDA-Public Use
  Company Number: US200802005366

PATIENT
  Age: 41 Year

DRUGS (5)
  1. BYETTA [Suspect]
     Indication: INSULIN-REQUIRING TYPE 2 DIABETES MELLITUS
     Dosage: SUBCUTANEOUS
     Route: 058
  2. ACTOS /USA/ (PIOGLITAZONE HYDROCHLORIDE) [Concomitant]
  3. METFORMIN HCL [Concomitant]
  4. INSULIN (INSULIN) [Concomitant]
  5. LEVEMIR (INSULIN DETEMIR) [Concomitant]

REACTIONS (1)
  - MALAISE [None]
